FAERS Safety Report 5988178-X (Version None)
Quarter: 2008Q4

REPORT INFORMATION
  Report Type: 
  Country: None (occurrence: None)
  Receive Date: 20081203
  Receipt Date: 20081117
  Transmission Date: 20090506
  Serious: Yes (Other)
  Sender: FDA-Public Use
  Company Number: 8039772

PATIENT
  Age: 14 Year
  Sex: Male

DRUGS (4)
  1. EQUASYM [Suspect]
     Dosage: 10 MG PO
     Route: 048
  2. NITROUS OXIDE [Suspect]
     Dosage: INH
     Route: 055
  3. BECOTIDE [Concomitant]
  4. ALBUTEROL SULFATE [Concomitant]

REACTIONS (2)
  - POTENTIATING DRUG INTERACTION [None]
  - SEDATION [None]
